FAERS Safety Report 7220616-7 (Version None)
Quarter: 2011Q1

REPORT INFORMATION
  Report Type: 
  Country: None (occurrence: None)
  Receive Date: 20110111
  Receipt Date: 20110104
  Transmission Date: 20110831
  Serious: Yes (Other)
  Sender: FDA-Public Use
  Company Number: US-PFIZER INC-2011002196

PATIENT

DRUGS (1)
  1. CAMPTOSAR [Suspect]
     Dosage: UNK
     Route: 042

REACTIONS (5)
  - ERYTHEMA [None]
  - SKIN IRRITATION [None]
  - INJECTION SITE DISCOMFORT [None]
  - INJECTION SITE EXTRAVASATION [None]
  - LOCAL SWELLING [None]
